FAERS Safety Report 5339975-5 (Version None)
Quarter: 2007Q2

REPORT INFORMATION
  Report Type: 
  Country: None (occurrence: None)
  Receive Date: 20070529
  Receipt Date: 20070514
  Transmission Date: 20071010
  Serious: No
  Sender: FDA-Public Use
  Company Number: TPA2007A01003

PATIENT
  Age: 42 Year
  Sex: Female

DRUGS (3)
  1. ROZEREM [Suspect]
     Indication: INSOMNIA
     Dosage: 8 MG, HS, PER ORAL
     Route: 048
     Dates: start: 20070510, end: 20070512
  2. LOVASTATIN [Concomitant]
  3. LISINOPRIL [Concomitant]

REACTIONS (1)
  - POOR QUALITY SLEEP [None]
